FAERS Safety Report 9950431 (Version 1)
Quarter: 2014Q1

REPORT INFORMATION
  Report Type: Report from Study
  Country: US (occurrence: US)
  Receive Date: 20140304
  Receipt Date: 20140304
  Transmission Date: 20141002
  Serious: No
  Sender: FDA-Public Use
  Company Number: US-ABBVIE-13P-163-1071513-00

PATIENT
  Age: 53 Year
  Sex: Female

DRUGS (6)
  1. HUMIRA [Suspect]
     Indication: CROHN^S DISEASE
     Dates: start: 20130303
  2. MESALAMINE [Concomitant]
     Indication: PRODUCT USED FOR UNKNOWN INDICATION
     Dosage: RECTAL INFUSION DAILY
     Route: 054
  3. BALSALAZIDE [Concomitant]
     Indication: PRODUCT USED FOR UNKNOWN INDICATION
  4. CIALIS [Concomitant]
     Indication: RAYNAUD^S PHENOMENON
  5. VALACYCLOVIR [Concomitant]
     Indication: HERPES VIRUS INFECTION
  6. RESTATIS [Concomitant]
     Indication: DRY EYE
     Dosage: EACH EYE

REACTIONS (4)
  - Injection site pain [Recovering/Resolving]
  - Injection site bruising [Recovering/Resolving]
  - Wrong technique in drug usage process [Unknown]
  - Incorrect dose administered [Unknown]
